FAERS Safety Report 4912906-5 (Version None)
Quarter: 2006Q1

REPORT INFORMATION
  Report Type: 
  Country: None (occurrence: None)
  Receive Date: 20060215
  Receipt Date: 20051223
  Transmission Date: 20060701
  Serious: Yes (Hospitalization, Other)
  Sender: FDA-Public Use
  Company Number: 2005UW19384

PATIENT
  Age: 77 Year
  Sex: Female
  Weight: 104.3 kg

DRUGS (15)
  1. TOPROL-XL [Suspect]
     Route: 048
     Dates: start: 20050501, end: 20051213
  2. DIOVAN [Concomitant]
  3. SYNTHROID [Concomitant]
  4. ZOPRIN [Concomitant]
  5. ALBUTEROL [Concomitant]
  6. DARVOCET [Concomitant]
  7. PROPOXY [Concomitant]
  8. LESCOL XL [Concomitant]
  9. AMBIEN [Concomitant]
  10. PRILOSEC [Concomitant]
  11. LACTULOSE [Concomitant]
  12. TOBRADEX [Concomitant]
     Route: 047
  13. VITAMIN D [Concomitant]
  14. OMEGA 3 FATTY ACIDS [Concomitant]
  15. PROVENTIL [Concomitant]

REACTIONS (3)
  - BLOOD PRESSURE INCREASED [None]
  - DIZZINESS [None]
  - HEART RATE DECREASED [None]
